FAERS Safety Report 5283929-4 (Version None)
Quarter: 2007Q2

REPORT INFORMATION
  Report Type: 
  Country: None (occurrence: None)
  Receive Date: 20070402
  Receipt Date: 20070321
  Transmission Date: 20071010
  Serious: Yes (Hospitalization)
  Sender: FDA-Public Use
  Company Number: GB-PFIZER INC-2007024211

PATIENT

DRUGS (2)
  1. LYRICA [Suspect]
     Indication: PHANTOM PAIN
     Route: 048
  2. METHADONE HCL [Concomitant]

REACTIONS (2)
  - HALLUCINATION [None]
  - PSYCHOPATHIC PERSONALITY [None]
